FAERS Safety Report 4834099-5 (Version None)
Quarter: 2005Q4

REPORT INFORMATION
  Report Type: 
  Country: None (occurrence: None)
  Receive Date: 20051122
  Receipt Date: 20051116
  Transmission Date: 20060501
  Serious: Yes (Other)
  Sender: FDA-Public Use
  Company Number: GB-SOLVAY-00205003886

PATIENT
  Age: 38 Year
  Sex: Male
  Weight: 97.7 kg

DRUGS (3)
  1. COVERSYL [Interacting]
     Indication: HYPERTENSION
     Dosage: DAILY DOSE: 2 MILLIGRAM(S)
     Route: 048
     Dates: start: 20041201
  2. GINKGO BILBOA [Interacting]
     Indication: SEXUAL DYSFUNCTION
     Dosage: DAILY DOSE:  UNKNOWN
     Route: 065
     Dates: start: 20051003, end: 20051010
  3. BENDROFLUAZIDE [Suspect]
     Indication: HYPERTENSION
     Dosage: DAILY DOSE: 2.5 MILLIGRAM(S)
     Route: 048
     Dates: start: 20050502

REACTIONS (2)
  - BLOOD PRESSURE INCREASED [None]
  - DRUG INTERACTION [None]
